FAERS Safety Report 12535064 (Version 3)
Quarter: 2016Q3

REPORT INFORMATION
  Report Type: Spontaneous
  Country: US (occurrence: US)
  Receive Date: 20160707
  Receipt Date: 20160808
  Transmission Date: 20161109
  Serious: No
  Sender: FDA-Public Use
  Company Number: US-BEH-2016057753

PATIENT
  Sex: Female
  Weight: 82 kg

DRUGS (17)
  1. CALCIUM +D [Concomitant]
     Active Substance: CALCIUM\VITAMIN D
  2. BOTOX [Concomitant]
     Active Substance: ONABOTULINUMTOXINA
  3. PROAIR HFA [Concomitant]
     Active Substance: ALBUTEROL SULFATE
  4. PROBIOTIC [Concomitant]
     Active Substance: PROBIOTICS NOS
  5. ACETAMINOPHEN. [Concomitant]
     Active Substance: ACETAMINOPHEN
  6. L-M-X [Concomitant]
  7. PRAVASTATIN. [Concomitant]
     Active Substance: PRAVASTATIN
  8. ALLEGRA-D [Concomitant]
     Active Substance: FEXOFENADINE\PSEUDOEPHEDRINE
  9. EPIPEN [Concomitant]
     Active Substance: EPINEPHRINE
  10. SINGULAIR [Concomitant]
     Active Substance: MONTELUKAST SODIUM
  11. OSTEO BI-FLEX [Concomitant]
     Active Substance: CHONDROITIN SULFATE A\GLUCOSAMINE
  12. PREVACID [Concomitant]
     Active Substance: LANSOPRAZOLE
  13. FISH OIL [Concomitant]
     Active Substance: FISH OIL
  14. QVAR [Concomitant]
     Active Substance: BECLOMETHASONE DIPROPIONATE
  15. HIZENTRA [Suspect]
     Active Substance: HUMAN IMMUNOGLOBULIN G
     Indication: IMMUNODEFICIENCY COMMON VARIABLE
     Route: 058
  16. MAGNESIUM [Concomitant]
     Active Substance: MAGNESIUM
  17. DIPHENHYDRAMINE. [Concomitant]
     Active Substance: DIPHENHYDRAMINE

REACTIONS (2)
  - Sinusitis [Unknown]
  - Localised infection [Unknown]
